FAERS Safety Report 24816794 (Version 1)
Quarter: 2025Q1

REPORT INFORMATION
  Report Type: Spontaneous
  Country: CN (occurrence: CN)
  Receive Date: 20250107
  Receipt Date: 20250107
  Transmission Date: 20250408
  Serious: Yes (Hospitalization, Other)
  Sender: SANOFI AVENTIS
  Company Number: CN-SA-2025SA003211

PATIENT
  Age: 51 Year
  Sex: Male
  Weight: 57.5 kg

DRUGS (4)
  1. OXALIPLATIN [Suspect]
     Active Substance: OXALIPLATIN
     Indication: Colon cancer
     Route: 041
     Dates: start: 20241204, end: 20241204
  2. OXALIPLATIN [Suspect]
     Active Substance: OXALIPLATIN
     Route: 041
     Dates: start: 20241228, end: 20241228
  3. CAPECITABINE [Suspect]
     Active Substance: CAPECITABINE
     Indication: Colon cancer
     Dosage: 1.5 G, BID
     Route: 048
     Dates: start: 20241204, end: 20241216
  4. CAPECITABINE [Suspect]
     Active Substance: CAPECITABINE
     Dosage: 1.5 G, BID (D1-14 PO)
     Route: 048
     Dates: start: 20241228

REACTIONS (2)
  - Hepatic failure [Recovering/Resolving]
  - Myelosuppression [Recovering/Resolving]

NARRATIVE: CASE EVENT DATE: 20241224
